FAERS Safety Report 4352695-9 (Version None)
Quarter: 2004Q2

REPORT INFORMATION
  Report Type: 
  Country: None (occurrence: None)
  Receive Date: 20040430
  Receipt Date: 20040419
  Transmission Date: 20050107
  Serious: Yes (Hospitalization, Disabling)
  Sender: FDA-Public Use
  Company Number: US-JNJFOC-20040300771

PATIENT
  Age: 64 Year
  Sex: Female

DRUGS (14)
  1. LEVAQUIN [Suspect]
     Indication: CYSTITIS
     Dosage: SEE IMAGE
     Route: 048
     Dates: start: 20020601, end: 20020601
  2. LEVAQUIN [Suspect]
     Indication: CYSTITIS
     Dosage: SEE IMAGE
     Route: 048
     Dates: start: 20040101, end: 20040101
  3. PHENERGAN [Concomitant]
  4. XANAX [Concomitant]
  5. EFFEXOR XR [Concomitant]
  6. NEXIUM [Concomitant]
  7. TOPROL (METOPROLOL SUCCINATE) [Concomitant]
  8. ZANAFLEX [Concomitant]
  9. SYNTHROID [Concomitant]
  10. MOBIC [Concomitant]
  11. ABAPRO (IRBESARTAN) [Concomitant]
  12. LORCET-HD [Concomitant]
  13. LANTAS (INSULIN GLARGINE) [Concomitant]
  14. HUMALOG [Concomitant]

REACTIONS (23)
  - ARTHRALGIA [None]
  - BACK PAIN [None]
  - BLOOD GLUCOSE ABNORMAL [None]
  - BLOOD PRESSURE INADEQUATELY CONTROLLED [None]
  - CARDIAC FAILURE CONGESTIVE [None]
  - DEHYDRATION [None]
  - DRUG INEFFECTIVE [None]
  - DYSARTHRIA [None]
  - DYSGEUSIA [None]
  - FAECES DISCOLOURED [None]
  - FIBROMYALGIA [None]
  - GLOSSODYNIA [None]
  - INCONTINENCE [None]
  - KERATOCONJUNCTIVITIS SICCA [None]
  - MENTAL IMPAIRMENT [None]
  - MOBILITY DECREASED [None]
  - NECK PAIN [None]
  - OSTEOARTHRITIS [None]
  - PAIN IN EXTREMITY [None]
  - STOMATITIS [None]
  - SUICIDAL IDEATION [None]
  - SWOLLEN TONGUE [None]
  - VISION BLURRED [None]
